FAERS Safety Report 7907406-4 (Version None)
Quarter: 2011Q4

REPORT INFORMATION
  Report Type: 
  Country: None (occurrence: None)
  Receive Date: 20111110
  Receipt Date: 20111028
  Transmission Date: 20120403
  Serious: Yes (Hospitalization)
  Sender: FDA-Public Use
  Company Number: GB-MYLANLABS-2011S1022763

PATIENT
  Age: 39 Year
  Sex: Male

DRUGS (14)
  1. HYOSCINE HBR HYT [Suspect]
     Indication: SALIVARY HYPERSECRETION
     Route: 065
  2. CLOZAPINE [Suspect]
     Indication: SCHIZOPHRENIA, PARANOID TYPE
     Route: 065
     Dates: start: 20080129, end: 20080205
  3. ABILIFY [Suspect]
     Indication: SCHIZOPHRENIA, PARANOID TYPE
     Dosage: 10MG IN THE MORNING
     Route: 065
     Dates: start: 20080218, end: 20080223
  4. LORAZEPAM [Concomitant]
     Route: 065
  5. CHLORPROMAZINE [Concomitant]
     Indication: SCHIZOPHRENIA, PARANOID TYPE
     Dosage: 50MG IN THE MORNING AND 100MG AT NIGHT
     Route: 065
     Dates: end: 20071217
  6. PROCYCLIDINE HYDROCHLORIDE 2MG TAB [Concomitant]
     Indication: SCHIZOPHRENIA, PARANOID TYPE
     Route: 065
     Dates: end: 20071217
  7. DIAZEPAM [Concomitant]
     Route: 065
  8. DEPAKOTE [Concomitant]
     Route: 065
     Dates: start: 20080205
  9. QUETIAPINE [Suspect]
     Indication: SCHIZOPHRENIA, PARANOID TYPE
     Dosage: 50MG AT NIGHT
     Route: 065
     Dates: start: 20080101, end: 20080108
  10. CLOZAPINE [Concomitant]
     Dosage: 100MG IN THE MORNING AND 350MG AT NIGHT
     Route: 065
     Dates: end: 20071217
  11. VALPROATE SODIUM [Suspect]
  12. DEPIXOL [Concomitant]
     Indication: SCHIZOPHRENIA, PARANOID TYPE
     Route: 030
     Dates: end: 20071217
  13. LITHIUM [Concomitant]
     Route: 065
     Dates: start: 20080306
  14. CLOZAPINE [Suspect]
     Route: 065
     Dates: start: 20080326

REACTIONS (1)
  - NEUROLEPTIC MALIGNANT SYNDROME [None]
